FAERS Safety Report 8593707-6 (Version None)
Quarter: 2012Q3

REPORT INFORMATION
  Report Type: 
  Country: None (occurrence: None)
  Receive Date: 20120814
  Receipt Date: 20120806
  Transmission Date: 20120928
  Serious: No
  Sender: FDA-Public Use
  Company Number: US-ASTRAZENECA-2012SE55358

PATIENT
  Age: 34 Year
  Sex: Male
  Weight: 127 kg

DRUGS (1)
  1. SEROQUEL XR [Suspect]
     Indication: BIPOLAR I DISORDER
     Route: 048
     Dates: start: 20090101

REACTIONS (13)
  - INSOMNIA [None]
  - TACHYPHRENIA [None]
  - DEPRESSED MOOD [None]
  - BODY TEMPERATURE INCREASED [None]
  - WEIGHT INCREASED [None]
  - VOMITING [None]
  - MENTAL DISORDER [None]
  - DRUG DOSE OMISSION [None]
  - MUTISM [None]
  - ACTIVITIES OF DAILY LIVING IMPAIRED [None]
  - EYE PAIN [None]
  - HYPERHIDROSIS [None]
  - DIARRHOEA [None]
